FAERS Safety Report 15360347 (Version 2)
Quarter: 2018Q4

REPORT INFORMATION
  Report Type: Report from Study
  Country: CA (occurrence: CA)
  Receive Date: 20180907
  Receipt Date: 20181008
  Transmission Date: 20190204
  Serious: Yes (Hospitalization, Other)
  Sender: FDA-Public Use
  Company Number: CA-BRISTOL-MYERS SQUIBB COMPANY-BMS-2018-012500

PATIENT
  Age: 14 Year
  Sex: Female

DRUGS (2)
  1. ABATACEPT [Suspect]
     Active Substance: ABATACEPT
     Indication: RHEUMATOID ARTHRITIS
     Dosage: 500 MG, Q4WK
     Route: 042
     Dates: start: 20150702
  2. ABATACEPT [Suspect]
     Active Substance: ABATACEPT
     Indication: JUVENILE IDIOPATHIC ARTHRITIS
     Route: 065

REACTIONS (14)
  - Depression [Unknown]
  - Pneumonitis [Unknown]
  - Infusion site pain [Recovered/Resolved]
  - Ecchymosis [Recovered/Resolved]
  - Pneumonia [Unknown]
  - Contusion [Recovered/Resolved]
  - Ill-defined disorder [Unknown]
  - Eating disorder [Unknown]
  - Lung infection [Unknown]
  - Joint swelling [Unknown]
  - Nasopharyngitis [Unknown]
  - Arthritis reactive [Unknown]
  - Influenza [Unknown]
  - Bronchial disorder [Unknown]

NARRATIVE: CASE EVENT DATE: 20180206
